FAERS Safety Report 10172955 (Version 1)
Quarter: 2014Q2

REPORT INFORMATION
  Report Type: Spontaneous
  Country: US (occurrence: None)
  Receive Date: 20140416
  Receipt Date: 20140416
  Transmission Date: 20141212
  Serious: No
  Sender: FDA-Public Use
  Company Number: 163-POMAL-13121831

PATIENT
  Age: 76 Year
  Sex: Female
  Weight: 90.72 kg

DRUGS (16)
  1. POMALYST (POMALIDOMIDE) (4 MILLIGRAM, CAPSULES) [Suspect]
     Indication: PLASMA CELL MYELOMA
     Dosage: 4 MG, 21 IN 28 D, PO
     Route: 048
     Dates: start: 20130625
  2. NEXIUM (ESOMEPRAZOLE) [Concomitant]
  3. PAMELOR (NORTRIPTYLINE HYDROCHLORIDE) [Concomitant]
  4. DEXAMETHASONE (DEXAMETHASONE) [Concomitant]
  5. MULTIVITAMINS (MULTIVITAMINS) [Concomitant]
  6. LIDODERM (LIDOCAINE) [Concomitant]
  7. LORTAB (VICODIN) [Concomitant]
  8. DETROL (TOLTERODINE L-TARTRATE) [Concomitant]
  9. WARFARIN SODIUM (WARFARIN SODIUM) [Concomitant]
  10. HYDROCORTISONE (HYDROCORTISONE) [Concomitant]
  11. GABAPENTIN (GABAPENTIN) [Concomitant]
  12. ZYRTEC (CETIRIZINE HYDROCHLORIDE) [Concomitant]
  13. FLONASE (FLUTICASONE PROPIONATE) [Concomitant]
  14. CALCIUM CITRATE (CALCIUM CITRATE) [Concomitant]
  15. AMIODARONE (AMIODARONE) [Concomitant]
  16. BACTRIM DS (BACTRIM) [Concomitant]

REACTIONS (3)
  - Weight increased [None]
  - Fluid retention [None]
  - Oedema peripheral [None]
